FAERS Safety Report 8997772 (Version 2)
Quarter: 2013Q2

REPORT INFORMATION
  Report Type: Spontaneous
  Country: IT (occurrence: IT)
  Receive Date: 20130104
  Receipt Date: 20130521
  Transmission Date: 20140414
  Serious: Yes (Other)
  Sender: FDA-Public Use
  Company Number: IT-ROCHE-1176292

PATIENT
  Age: 72 Year
  Sex: Female

DRUGS (7)
  1. AVASTIN [Suspect]
     Indication: COLON CANCER
     Route: 042
     Dates: start: 20121122, end: 20121122
  2. FLUOROURACILE TEVA [Suspect]
     Indication: COLON CANCER
     Route: 042
     Dates: start: 20121122, end: 20121122
  3. FLUOROURACILE TEVA [Suspect]
     Route: 042
     Dates: start: 20121122, end: 20121123
  4. CAMPTO [Suspect]
     Indication: COLON CANCER
     Route: 042
     Dates: start: 20121122, end: 20121122
  5. ONDANSETRON [Concomitant]
     Indication: COLON CANCER
     Route: 042
     Dates: start: 20121122, end: 20121122
  6. RANIDIL [Concomitant]
     Indication: COLON CANCER
     Route: 042
     Dates: start: 20121122, end: 20121122
  7. SOLDESAM [Concomitant]
     Indication: COLON CANCER
     Route: 042
     Dates: start: 20121122, end: 20121122

REACTIONS (6)
  - Fatigue [Recovering/Resolving]
  - Lacrimation increased [Recovering/Resolving]
  - Nausea [Recovering/Resolving]
  - Stomatitis [Recovering/Resolving]
  - Vision blurred [Recovering/Resolving]
  - Vomiting [Recovering/Resolving]
